FAERS Safety Report 6251630-6 (Version None)
Quarter: 2009Q2

REPORT INFORMATION
  Report Type: 
  Country: None (occurrence: None)
  Receive Date: 20090630
  Receipt Date: 20090625
  Transmission Date: 20091009
  Serious: Yes (Other)
  Sender: FDA-Public Use
  Company Number: DE-ABBOTT-09P-062-0579245-00

PATIENT
  Sex: Female

DRUGS (2)
  1. ERGENYL TABLETS [Suspect]
     Indication: EPILEPSY
     Route: 048
  2. MARCUMAR [Interacting]
     Indication: TACHYARRHYTHMIA
     Route: 048
     Dates: start: 20090401

REACTIONS (3)
  - DRUG INTERACTION [None]
  - EPILEPSY [None]
  - THERAPEUTIC RESPONSE DECREASED [None]
